FAERS Safety Report 9391834 (Version 2)
Quarter: 2013Q3

REPORT INFORMATION
  Report Type: Report from Study
  Country: CA (occurrence: CA)
  Receive Date: 20130709
  Receipt Date: 20130709
  Transmission Date: 20140515
  Serious: Yes (Hospitalization)
  Sender: FDA-Public Use
  Company Number: CA-009507513-1304CAN005468

PATIENT
  Age: 68 Year
  Sex: Male
  Weight: 48.35 kg

DRUGS (19)
  1. ERTUGLIFLOZIN [Suspect]
     Indication: TYPE 2 DIABETES MELLITUS
     Dosage: 5 MG, QD
     Route: 048
     Dates: start: 20100803, end: 20101008
  2. METFORMIN [Suspect]
     Indication: TYPE 2 DIABETES MELLITUS
     Dosage: 500 MG, UNK
     Route: 048
     Dates: start: 20100609
  3. CALCIUM (UNSPECIFIED) (+) VITAMIN D (UNSPECIFIED) [Concomitant]
     Route: 048
  4. CANDESARTAN CILEXETIL [Concomitant]
     Dosage: UNK
     Route: 048
     Dates: start: 200808
  5. CLONIDINE [Concomitant]
     Dosage: UNK
     Route: 048
     Dates: start: 200808
  6. CLONIDINE [Concomitant]
     Dosage: UNK
     Route: 048
     Dates: start: 200908, end: 20101007
  7. PLAVIX [Concomitant]
     Dosage: UNK
     Route: 048
     Dates: start: 200808
  8. DILTIAZEM HYDROCHLORIDE [Concomitant]
     Dosage: UNK
     Route: 048
     Dates: start: 200808
  9. FENOFIBRATE [Concomitant]
     Dosage: UNK
     Route: 048
     Dates: start: 200808
  10. ADVAIR [Concomitant]
     Dosage: UNK
     Route: 055
     Dates: start: 200808
  11. FUROSEMIDE [Concomitant]
     Dosage: UNK
     Route: 048
     Dates: start: 200808
  12. FUROSEMIDE [Concomitant]
     Dosage: UNK
     Route: 048
     Dates: start: 200808, end: 20100616
  13. FUROSEMIDE [Concomitant]
     Dosage: UNK
     Route: 048
     Dates: start: 20100617
  14. OMEPRAZOLE [Concomitant]
     Dosage: UNK
     Route: 048
     Dates: start: 200808
  15. ACETAMINOPHEN [Concomitant]
     Dosage: UNK
     Route: 048
     Dates: start: 200808
  16. QUININE [Concomitant]
     Dosage: UNK
     Route: 048
     Dates: start: 200808
  17. ROSUVASTATIN CALCIUM [Concomitant]
     Dosage: UNK
     Route: 048
     Dates: start: 20100506
  18. TAMSULOSIN HYDROCHLORIDE [Concomitant]
     Dosage: UNK
     Route: 048
     Dates: start: 200808
  19. TRANDOLAPRIL [Concomitant]
     Dosage: UNK
     Route: 048
     Dates: start: 20100502

REACTIONS (2)
  - Cellulitis [Recovered/Resolved]
  - Syncope [Recovered/Resolved]
